FAERS Safety Report 4508986-1 (Version None)
Quarter: 2004Q4

REPORT INFORMATION
  Report Type: 
  Country: None (occurrence: None)
  Receive Date: 20041122
  Receipt Date: 20041122
  Transmission Date: 20050328
  Serious: Yes (Hospitalization)
  Sender: FDA-Public Use
  Company Number: None

PATIENT
  Age: 11 Year
  Sex: Male

DRUGS (3)
  1. ALBUTEROL [Suspect]
     Indication: ASTHMA
     Dosage: UNKNOWN
  2. MONTELUKAST [Concomitant]
  3. CETIRIZINE ZYRTEC [Concomitant]

REACTIONS (2)
  - TACHYCARDIA [None]
  - TREMOR [None]
